FAERS Safety Report 8605177-X (Version None)
Quarter: 2012Q3

REPORT INFORMATION
  Report Type: 
  Country: None (occurrence: None)
  Receive Date: 20120820
  Receipt Date: 20120814
  Transmission Date: 20120928
  Serious: Yes (Life-Threatening, Other)
  Sender: FDA-Public Use
  Company Number: US-US-EMD SERONO, INC.-7154723

PATIENT
  Sex: Female

DRUGS (2)
  1. REBIF [Suspect]
     Indication: MULTIPLE SCLEROSIS
     Route: 058
     Dates: start: 20120217
  2. PAIN PUMP [Concomitant]
     Indication: PAIN

REACTIONS (3)
  - CELLULITIS [None]
  - CARDIAC ARREST [None]
  - CARDIAC MURMUR [None]
